FAERS Safety Report 25898389 (Version 1)
Quarter: 2025Q4

REPORT INFORMATION
  Report Type: Spontaneous
  Country: CN (occurrence: CN)
  Receive Date: 20251009
  Receipt Date: 20251009
  Transmission Date: 20260119
  Serious: Yes (Other)
  Sender: BEIGENE
  Company Number: CN-BEIGENE-BGN-2025-017019

PATIENT
  Age: 76 Year

DRUGS (2)
  1. TISLELIZUMAB [Suspect]
     Active Substance: TISLELIZUMAB
     Indication: Metastasis
     Dosage: 200 MILLIGRAM, QD
  2. PACLITAXEL [Suspect]
     Active Substance: PACLITAXEL
     Indication: Metastasis
     Dosage: 300 MILLIGRAM, QD

REACTIONS (1)
  - Myelosuppression [Recovering/Resolving]
